FAERS Safety Report 7374285-6 (Version None)
Quarter: 2011Q1

REPORT INFORMATION
  Report Type: 
  Country: None (occurrence: None)
  Receive Date: 20110325
  Receipt Date: 20110228
  Transmission Date: 20110831
  Serious: No
  Sender: FDA-Public Use
  Company Number: US-B.I. PHARMACEUTICALS,INC./RIDGEFIELD-2011-BP-05632BP

PATIENT
  Age: 76 Year
  Sex: Female

DRUGS (15)
  1. LEVOTHYROXINE SODIUM [Concomitant]
     Indication: THYROID DISORDER
     Dosage: 100 MG
     Route: 048
     Dates: start: 19530101
  2. FISH OIL [Concomitant]
  3. HYDROCHLOROTHIAZIDE [Concomitant]
     Indication: HYPERTENSION
     Dosage: 25 MG
     Route: 048
     Dates: start: 20070101
  4. DIGOXIN [Concomitant]
     Indication: CARDIAC DISORDER
     Route: 048
     Dates: start: 20070101
  5. CALCIUM + D [Concomitant]
     Route: 048
     Dates: start: 20070101
  6. VITAMIN D [Concomitant]
  7. ASPIRIN [Concomitant]
     Dosage: 81 MG
  8. PRADAXA [Suspect]
     Indication: ATRIAL FIBRILLATION
     Dosage: 300 MG
     Route: 048
     Dates: start: 20110101, end: 20110224
  9. CARVEDILOL [Concomitant]
     Indication: HYPERTENSION
     Dosage: 75 MG
     Route: 048
     Dates: start: 20070101
  10. FLAXSEED OIL [Concomitant]
  11. LASIX [Concomitant]
     Indication: FLUID RETENTION
     Dosage: 40 MG
     Route: 048
     Dates: start: 20060101
  12. MG [Concomitant]
     Dosage: 400 MG
  13. KLI [Concomitant]
     Dosage: 30 MEQ
     Route: 048
     Dates: start: 20100101
  14. M.V.I. [Concomitant]
     Route: 048
     Dates: start: 20070101
  15. TRIPLE FLEX [Concomitant]

REACTIONS (2)
  - DYSPHAGIA [None]
  - HEADACHE [None]
